FAERS Safety Report 10518336 (Version 1)
Quarter: 2014Q4

REPORT INFORMATION
  Report Type: Spontaneous
  Country: US (occurrence: None)
  Receive Date: 20141014
  Receipt Date: 20141014
  Transmission Date: 20150528
  Serious: No
  Sender: FDA-Public Use
  Company Number: None

PATIENT
  Age: 62 Year
  Sex: Male
  Weight: 91.7 kg

DRUGS (2)
  1. REGADENOSON [Suspect]
     Active Substance: REGADENOSON
     Indication: SURGERY
     Route: 042
     Dates: start: 20140617, end: 20140617
  2. REGADENOSON [Suspect]
     Active Substance: REGADENOSON
     Indication: CARDIOVASCULAR DISORDER
     Route: 042
     Dates: start: 20140617, end: 20140617

REACTIONS (10)
  - Respiratory depression [None]
  - Chest pain [None]
  - Headache [None]
  - Cough [None]
  - Dyspnoea [None]
  - Wheezing [None]
  - Erythema [None]
  - Aphasia [None]
  - Respiratory distress [None]
  - Choking sensation [None]

NARRATIVE: CASE EVENT DATE: 20140617
